FAERS Safety Report 6308993-2 (Version None)
Quarter: 2009Q3

REPORT INFORMATION
  Report Type: 
  Country: None (occurrence: None)
  Receive Date: 20090813
  Receipt Date: 20090810
  Transmission Date: 20100115
  Serious: Yes (Other)
  Sender: FDA-Public Use
  Company Number: US-MERCK-99010537

PATIENT
  Age: 46 Year
  Sex: Female
  Weight: 66 kg

DRUGS (15)
  1. SINGULAIR [Suspect]
     Indication: ASTHMA
     Route: 048
     Dates: start: 19980504, end: 19981207
  2. PROVENTIL-HFA [Concomitant]
  3. PROVENTIL-HFA [Concomitant]
     Route: 048
  4. UNIPHYL [Concomitant]
     Route: 065
  5. ACCOLATE [Concomitant]
     Route: 065
     Dates: start: 19970201, end: 19980501
  6. PRILOSEC [Concomitant]
     Route: 065
  7. PROGESTERONE [Concomitant]
     Route: 065
  8. PREDNISONE [Concomitant]
     Route: 065
     Dates: start: 19980101, end: 19980101
  9. PREDNISONE [Concomitant]
     Route: 065
     Dates: start: 19980101
  10. PREDNISONE [Concomitant]
     Route: 065
     Dates: start: 19980501, end: 19980101
  11. PREDNISONE [Concomitant]
     Route: 048
     Dates: start: 19980101, end: 19980101
  12. ANAPROX [Concomitant]
     Route: 065
  13. [COMPOSITION UNSPECIFIED] [Concomitant]
     Route: 065
  14. CALCIUM SUPPLEMENT (COMPOSITION UNSPECIFIED) [Concomitant]
     Route: 065
  15. VITAMIN D [Concomitant]
     Route: 065

REACTIONS (6)
  - ALLERGIC GRANULOMATOUS ANGIITIS [None]
  - BRONCHOSPASM [None]
  - COUGH [None]
  - HEPATITIS [None]
  - PETECHIAE [None]
  - STEROID WITHDRAWAL SYNDROME [None]
